FAERS Safety Report 6967216-1 (Version None)
Quarter: 2010Q3

REPORT INFORMATION
  Report Type: 
  Country: None (occurrence: None)
  Receive Date: 20100907
  Receipt Date: 20100825
  Transmission Date: 20110219
  Serious: Yes (Hospitalization, Other)
  Sender: FDA-Public Use
  Company Number: US-JNJFOC-20100406325

PATIENT
  Sex: Female

DRUGS (2)
  1. LEVAQUIN [Suspect]
     Indication: STAPHYLOCOCCAL INFECTION
     Route: 048
  2. LEVAQUIN [Suspect]
     Route: 042

REACTIONS (2)
  - TENDONITIS [None]
  - TENOSYNOVITIS STENOSANS [None]
